FAERS Safety Report 23642227 (Version 1)
Quarter: 2024Q1

REPORT INFORMATION
  Report Type: Spontaneous
  Country: CA (occurrence: CA)
  Receive Date: 20240318
  Receipt Date: 20240318
  Transmission Date: 20240410
  Serious: Yes (Other)
  Sender: FDA-Public Use
  Company Number: CA-002147023-NVSC2024CA055269

PATIENT
  Age: 81 Year
  Sex: Male

DRUGS (1)
  1. IMATINIB [Suspect]
     Active Substance: IMATINIB
     Indication: Metastasis
     Dosage: 200 MG, QD (1 EVERY 1 DAYS)
     Route: 048

REACTIONS (2)
  - Rash [Recovered/Resolved]
  - Product substitution issue [Recovered/Resolved]
